FAERS Safety Report 12528311 (Version 2)
Quarter: 2016Q3

REPORT INFORMATION
  Report Type: Spontaneous
  Country: JP (occurrence: JP)
  Receive Date: 20160705
  Receipt Date: 20160727
  Transmission Date: 20161109
  Serious: Yes (Hospitalization, Other)
  Sender: FDA-Public Use
  Company Number: JP-GILEAD-2016-0215902

PATIENT
  Age: 82 Year
  Sex: Female
  Weight: 62.6 kg

DRUGS (7)
  1. SOVALDI [Suspect]
     Active Substance: SOFOSBUVIR
     Indication: CHRONIC HEPATITIS C
     Dosage: 1 DF, UNK
     Route: 048
     Dates: start: 20160304
  2. ETIZOLAM [Concomitant]
     Active Substance: ETIZOLAM
  3. CALONAL [Concomitant]
     Active Substance: ACETAMINOPHEN
  4. FERROSTEC [Concomitant]
     Active Substance: SODIUM FERROUS CITRATE
  5. REBETOL [Concomitant]
     Active Substance: RIBAVIRIN
  6. URSO [Concomitant]
     Active Substance: URSODIOL
  7. CEFACLOR. [Concomitant]
     Active Substance: CEFACLOR

REACTIONS (4)
  - Spinal compression fracture [Unknown]
  - Pseudarthrosis [Unknown]
  - Spondylitis [Unknown]
  - Spinal cord paralysis [Unknown]

NARRATIVE: CASE EVENT DATE: 20160401
